FAERS Safety Report 5274982-2 (Version None)
Quarter: 2007Q1

REPORT INFORMATION
  Report Type: 
  Country: None (occurrence: None)
  Receive Date: 20061207
  Receipt Date: 20041227
  Transmission Date: 20070707
  Serious: No
  Sender: FDA-Public Use
  Company Number: 2004UW26132

PATIENT
  Age: 62 Year
  Sex: Female
  Weight: 58.967 kg

DRUGS (4)
  1. TOPROL-XL [Suspect]
     Indication: HYPERTENSION
     Dosage: 100 MG PO
     Route: 048
     Dates: start: 20040101
  2. TOPROL-XL [Suspect]
     Indication: HYPERTENSION
     Dosage: 50 MG PO
     Route: 048
     Dates: start: 20040101
  3. COGENTIN [Concomitant]
  4. PROLIXIN [Concomitant]

REACTIONS (2)
  - HYPOAESTHESIA [None]
  - LOSS OF CONSCIOUSNESS [None]
